FAERS Safety Report 4356518-3 (Version None)
Quarter: 2004Q2

REPORT INFORMATION
  Report Type: 
  Country: None (occurrence: None)
  Receive Date: 20040506
  Receipt Date: 20040427
  Transmission Date: 20050107
  Serious: Yes (Hospitalization)
  Sender: FDA-Public Use
  Company Number: 2004210862JP

PATIENT
  Age: 66 Year
  Sex: Male

DRUGS (2)
  1. CAMPTOSAR [Suspect]
     Indication: SMALL CELL LUNG CANCER STAGE UNSPECIFIED
     Dosage: 100 MG, CYCLIC, IV DRIP
     Route: 041
     Dates: start: 20040330, end: 20040406
  2. PARAPLATIN [Suspect]
     Indication: SMALL CELL LUNG CANCER STAGE UNSPECIFIED
     Dosage: 300 MG, CYCLIC, IV DRIP
     Route: 041
     Dates: start: 20040330, end: 20040330

REACTIONS (2)
  - BODY TEMPERATURE INCREASED [None]
  - URTICARIA [None]
